FAERS Safety Report 4442062-1 (Version None)
Quarter: 2004Q3

REPORT INFORMATION
  Report Type: 
  Country: None (occurrence: None)
  Receive Date: 20040903
  Receipt Date: 20040526
  Transmission Date: 20050211
  Serious: Yes (Hospitalization)
  Sender: FDA-Public Use
  Company Number: 2004UW04757

PATIENT
  Age: 71 Year
  Sex: Female
  Weight: 65.318 kg

DRUGS (9)
  1. CRESTOR [Suspect]
     Dosage: 10 OR 20 MG
     Dates: start: 20031201
  2. ZESTRIL [Concomitant]
  3. COUMADIN [Concomitant]
  4. ATENOLOL [Concomitant]
  5. NO MATCH [Concomitant]
  6. VITAMIN C [Concomitant]
  7. VITAMIN E [Concomitant]
  8. ASPIRIN [Concomitant]
  9. PERSANTIN INJ [Concomitant]

REACTIONS (3)
  - DRUG INTERACTION [None]
  - INTERNATIONAL NORMALISED RATIO INCREASED [None]
  - MYALGIA [None]
